FAERS Safety Report 13055370 (Version 3)
Quarter: 2017Q1

REPORT INFORMATION
  Report Type: Spontaneous
  Country: AE (occurrence: AE)
  Receive Date: 20161222
  Receipt Date: 20170131
  Transmission Date: 20170428
  Serious: Yes (Other)
  Sender: FDA-Public Use
  Company Number: AE-SA-2016SA231339

PATIENT
  Age: 32 Year
  Sex: Female

DRUGS (2)
  1. ARAVA [Suspect]
     Active Substance: LEFLUNOMIDE
     Route: 065
     Dates: start: 20160926
  2. ENBREL [Concomitant]
     Active Substance: ETANERCEPT
     Indication: RHEUMATOID ARTHRITIS
     Route: 058
     Dates: start: 20160926, end: 20161016

REACTIONS (6)
  - Abortion spontaneous incomplete [Unknown]
  - Human chorionic gonadotropin decreased [Unknown]
  - Baseline foetal heart rate variability disorder [Unknown]
  - Exposure during pregnancy [Unknown]
  - Abortion missed [Unknown]
  - Haemorrhagic disorder [Unknown]
